FAERS Safety Report 9029696 (Version 2)
Quarter: 2013Q1

REPORT INFORMATION
  Report Type: Spontaneous
  Country: DE (occurrence: DE)
  Receive Date: 20130124
  Receipt Date: 20130207
  Transmission Date: 20140127
  Serious: Yes (Hospitalization)
  Sender: FDA-Public Use
  Company Number: DE-ABBOTT-13P-062-1039352-00

PATIENT
  Age: 27 Year
  Sex: Male

DRUGS (6)
  1. CLARITHROMYCIN [Suspect]
     Indication: HELICOBACTER INFECTION
     Dates: start: 20130110, end: 20130113
  2. CLARITHROMYCIN [Suspect]
     Indication: BACTERIAL DISEASE CARRIER
  3. PANTOPRAZOLE [Suspect]
     Indication: HELICOBACTER INFECTION
     Dates: start: 20130110, end: 20130113
  4. PANTOPRAZOLE [Suspect]
     Indication: BACTERIAL DISEASE CARRIER
  5. AMOXICILLIN [Suspect]
     Indication: HELICOBACTER INFECTION
     Dates: start: 20130110, end: 20130113
  6. AMOXICILLIN [Suspect]
     Indication: BACTERIAL DISEASE CARRIER

REACTIONS (5)
  - Back pain [Recovering/Resolving]
  - Coordination abnormal [Recovering/Resolving]
  - Sensation of pressure [Recovering/Resolving]
  - Fatigue [Recovering/Resolving]
  - Asthenia [Recovering/Resolving]
